FAERS Safety Report 23520771 (Version 1)
Quarter: 2024Q1

REPORT INFORMATION
  Report Type: 
  Country: None (occurrence: None)
  Receive Date: 20240214
  Receipt Date: 20240214
  Transmission Date: 20240410
  Serious: No
  Sender: FDA-Public Use
  Company Number: CA-ROCHE-3323223

PATIENT
  Age: 61 Year

DRUGS (3)
  1. OCREVUS [Suspect]
     Active Substance: OCRELIZUMAB
     Dosage: 300 MG AT DAY 0 AND 14, THEN 600 MG EVERY 6 MONTH
     Dates: start: 20230328
  2. GABAPENTIN [Concomitant]
     Active Substance: GABAPENTIN
  3. AMITRIPTYLINE [Concomitant]
     Active Substance: AMITRIPTYLINE

REACTIONS (11)
  - Fall [None]
  - Fatigue [None]
  - Balance disorder [None]
  - Headache [None]
  - Insomnia [None]
  - Pharyngeal paraesthesia [None]
  - SARS-CoV-2 test positive [None]
  - Restless legs syndrome [None]
  - Pain in extremity [None]
  - Skin discolouration [None]
  - Precancerous cells present [None]

NARRATIVE: CASE EVENT DATE: 20230328
